FAERS Safety Report 14618592 (Version 1)
Quarter: 2018Q1

REPORT INFORMATION
  Report Type: Spontaneous
  Country: US (occurrence: US)
  Receive Date: 20180309
  Receipt Date: 20180309
  Transmission Date: 20180509
  Serious: No
  Sender: FDA-Public Use
  Company Number: US-BAYER-2018-044065

PATIENT
  Sex: Male

DRUGS (3)
  1. CLARITIN LIQUI-GELS [Suspect]
     Active Substance: LORATADINE
     Indication: NASOPHARYNGITIS
  2. CLARITIN LIQUI-GELS [Suspect]
     Active Substance: LORATADINE
     Indication: NASAL CONGESTION
     Route: 065
  3. NASAL [OXYMETAZOLINE HYDROCHLORIDE] [Concomitant]

REACTIONS (1)
  - Product use in unapproved indication [Unknown]
